FAERS Safety Report 4904769-9 (Version None)
Quarter: 2006Q1

REPORT INFORMATION
  Report Type: 
  Country: None (occurrence: None)
  Receive Date: 20060208
  Receipt Date: 20051003
  Transmission Date: 20060701
  Serious: No
  Sender: FDA-Public Use
  Company Number: US-GLAXOSMITHKLINE-A0576684A

PATIENT
  Age: 53 Year
  Sex: Female

DRUGS (4)
  1. PAXIL [Suspect]
     Indication: DEPRESSION
     Dosage: 30MG PER DAY
     Route: 048
  2. PAXIL CR [Suspect]
     Indication: DEPRESSION
     Dates: start: 20050601, end: 20050601
  3. ATIVAN [Concomitant]
  4. TEMAZEPAM [Concomitant]

REACTIONS (3)
  - ANXIETY [None]
  - DRUG INEFFECTIVE [None]
  - PHARMACEUTICAL PRODUCT COMPLAINT [None]
